FAERS Safety Report 6837685-6 (Version None)
Quarter: 2010Q3

REPORT INFORMATION
  Report Type: 
  Country: None (occurrence: None)
  Receive Date: 20100707
  Receipt Date: 20100701
  Transmission Date: 20110219
  Serious: Yes (Other)
  Sender: FDA-Public Use
  Company Number: 2010SP037137

PATIENT
  Age: 16 Year
  Sex: Male

DRUGS (17)
  1. NOXAFIL [Suspect]
     Indication: FUNGAL INFECTION
     Dosage: 200 MG; QID;
     Dates: start: 20091101
  2. NOXAFIL [Suspect]
     Indication: FUNGAL INFECTION
     Dosage: 200 MG; QID;
     Dates: start: 20100621
  3. ACYCLOVIR [Concomitant]
  4. CYMEVAN [Concomitant]
  5. FUNGIZONE [Concomitant]
  6. AMBISOME [Concomitant]
  7. CIFLOX [Concomitant]
  8. IMIPENEM AND CILASTATIN [Concomitant]
  9. TARGOCID [Concomitant]
  10. LASIX [Concomitant]
  11. MODAMIDE [Concomitant]
  12. NICARDIPINE HYDROCHLORIDE [Concomitant]
  13. RIVOTRIL [Concomitant]
  14. TRIMEPRAZINE TAB [Concomitant]
  15. LARGACTIL [Concomitant]
  16. CORTISONE [Concomitant]
  17. NEXIUM [Concomitant]

REACTIONS (7)
  - ASPARTATE AMINOTRANSFERASE INCREASED [None]
  - BLOOD ALKALINE PHOSPHATASE INCREASED [None]
  - GAMMA-GLUTAMYLTRANSFERASE INCREASED [None]
  - HEPATOTOXICITY [None]
  - MULTI-ORGAN FAILURE [None]
  - RENAL FAILURE [None]
  - RESPIRATORY FAILURE [None]
